FAERS Safety Report 6983604-1 (Version None)
Quarter: 2010Q3

REPORT INFORMATION
  Report Type: 
  Country: None (occurrence: None)
  Receive Date: 20100914
  Receipt Date: 20081008
  Transmission Date: 20110219
  Serious: Yes (Other)
  Sender: FDA-Public Use
  Company Number: US-WYE-H05954908

PATIENT
  Sex: Female
  Weight: 77.3 kg

DRUGS (15)
  1. TYGACIL [Suspect]
     Indication: ARTHRITIS BACTERIAL
     Dosage: 50 MG EVERY 12 HOURS
     Route: 040
     Dates: start: 20080703, end: 20080703
  2. OMEPRAZOLE [Concomitant]
     Route: 048
  3. RIFAMPICIN [Concomitant]
     Route: 048
  4. LEXAPRO [Concomitant]
     Route: 048
  5. FOLIC ACID [Concomitant]
     Route: 048
  6. COLACE [Concomitant]
     Route: 048
  7. ULTRAM [Concomitant]
     Dosage: 50 MG TABLET (1-2), EVERY 4 HOURS AS NEEDED
     Route: 048
  8. ALBUTEROL [Concomitant]
     Dosage: 0.83 MG/ML EVERY 4 HOURS
     Route: 055
  9. RESTORIL [Concomitant]
     Dosage: 15 MG (1-2) EVERY NIGHT AS NEEDED
     Route: 048
  10. DULCOLAX [Concomitant]
     Dosage: 1 DAILY AS NEEDED
     Route: 054
  11. CIPROFLOXACIN [Concomitant]
     Route: 048
  12. CLINDAMYCIN [Concomitant]
     Route: 048
  13. ASPIRIN [Concomitant]
     Route: 048
  14. MAGNESIUM HYDROXIDE TAB [Concomitant]
     Dosage: 30 ML'S DAILY AS NEEDED
     Route: 048
  15. LEVAQUIN [Concomitant]
     Route: 048

REACTIONS (3)
  - DIARRHOEA [None]
  - NAUSEA [None]
  - VOMITING [None]
